FAERS Safety Report 20470169 (Version 2)
Quarter: 2022Q3

REPORT INFORMATION
  Report Type: Other
  Country: CL (occurrence: None)
  Receive Date: 20220214
  Receipt Date: 20220901
  Transmission Date: 20221026
  Serious: Yes (Hospitalization, Other)
  Sender: FDA-Public Use
  Company Number: CL-ROCHE-3013416

PATIENT
  Sex: Female
  Weight: 75 kg

DRUGS (9)
  1. OCRELIZUMAB [Suspect]
     Active Substance: OCRELIZUMAB
     Indication: Primary progressive multiple sclerosis
     Route: 042
  2. RIVOTRIL [Suspect]
     Active Substance: CLONAZEPAM
     Indication: Depression
     Route: 048
  3. REBIF [Concomitant]
     Active Substance: INTERFERON BETA-1A
  4. NATALIZUMAB [Concomitant]
     Active Substance: NATALIZUMAB
  5. PREGABALIN [Concomitant]
     Active Substance: PREGABALIN
     Indication: Fibromyalgia
     Dosage: IN MORNING
     Route: 048
  6. PREGABALIN [Concomitant]
     Active Substance: PREGABALIN
  7. DULOXETINE [Concomitant]
     Active Substance: DULOXETINE
     Indication: Depression
     Dosage: IN MORNING
     Route: 048
  8. KETOPROFEN [Concomitant]
     Active Substance: KETOPROFEN
     Route: 042
  9. PARECOXIB [Concomitant]
     Active Substance: PARECOXIB
     Route: 042

REACTIONS (24)
  - Multiple sclerosis [Unknown]
  - Multiple sclerosis [Unknown]
  - Urinary tract infection [Unknown]
  - Lower limb fracture [Unknown]
  - Diarrhoea [Unknown]
  - Inflammatory bowel disease [Unknown]
  - Headache [Unknown]
  - Nausea [Unknown]
  - Hypotension [Unknown]
  - Dizziness [Unknown]
  - Fall [Unknown]
  - Anaemia [Unknown]
  - Dyslipidaemia [Not Recovered/Not Resolved]
  - Paraesthesia [Unknown]
  - Urinary incontinence [Unknown]
  - Gastrointestinal disorder [Unknown]
  - Pain in extremity [Unknown]
  - Fatigue [Unknown]
  - Weight increased [Unknown]
  - Sensory disturbance [Unknown]
  - Fibromyalgia [Unknown]
  - Blindness [Unknown]
  - Muscular weakness [Not Recovered/Not Resolved]
  - Dizziness [Unknown]

NARRATIVE: CASE EVENT DATE: 20210101
